FAERS Safety Report 10591340 (Version 1)
Quarter: 2014Q4

REPORT INFORMATION
  Report Type: Spontaneous
  Country: US (occurrence: US)
  Receive Date: 20141118
  Receipt Date: 20141118
  Transmission Date: 20150529
  Serious: Yes (Hospitalization)
  Sender: FDA-Public Use
  Company Number: US-GILEAD-2014-0123142

PATIENT
  Age: 86 Year
  Sex: Male

DRUGS (13)
  1. ATENOLOL. [Concomitant]
     Active Substance: ATENOLOL
  2. PREDNISONE. [Concomitant]
     Active Substance: PREDNISONE
  3. ASPIRIN                            /00002701/ [Concomitant]
     Active Substance: ASPIRIN
  4. LETAIRIS [Suspect]
     Active Substance: AMBRISENTAN
     Indication: PULMONARY HYPERTENSION
     Dosage: 5 MG, QD
     Route: 065
     Dates: start: 20140314
  5. RISPERDAL [Concomitant]
     Active Substance: RISPERIDONE
  6. PLAVIX [Concomitant]
     Active Substance: CLOPIDOGREL BISULFATE
  7. SANCTURA [Concomitant]
     Active Substance: TROSPIUM CHLORIDE
  8. LASIX [Concomitant]
     Active Substance: FUROSEMIDE
  9. GABAPENTIN. [Concomitant]
     Active Substance: GABAPENTIN
  10. OXYCONTIN [Concomitant]
     Active Substance: OXYCODONE HYDROCHLORIDE
  11. LEXAPRO [Concomitant]
     Active Substance: ESCITALOPRAM OXALATE
  12. METHOTREXATE [Concomitant]
     Active Substance: METHOTREXATE
  13. SYNTHROID [Concomitant]
     Active Substance: LEVOTHYROXINE SODIUM

REACTIONS (1)
  - Dyspnoea [Unknown]
